FAERS Safety Report 6863425-0 (Version None)
Quarter: 2010Q3

REPORT INFORMATION
  Report Type: 
  Country: None (occurrence: None)
  Receive Date: 20100721
  Receipt Date: 20100713
  Transmission Date: 20110219
  Serious: Yes (Other)
  Sender: FDA-Public Use
  Company Number: JP-PFIZER INC-2010087159

PATIENT
  Age: 67 Year
  Sex: Male

DRUGS (2)
  1. LIPITOR [Suspect]
     Dosage: 10 MG
     Route: 048
     Dates: start: 20091001, end: 20100605
  2. ASPIRIN [Concomitant]
     Dosage: UNK
     Route: 048

REACTIONS (3)
  - CATARACT [None]
  - MYALGIA [None]
  - VISION BLURRED [None]
